FAERS Safety Report 15166050 (Version 1)
Quarter: 2018Q3

REPORT INFORMATION
  Report Type: Spontaneous
  Country: CH (occurrence: CH)
  Receive Date: 20180719
  Receipt Date: 20180719
  Transmission Date: 20181010
  Serious: Yes (Hospitalization)
  Sender: FDA-Public Use
  Company Number: CH-BAYER-2018-120318

PATIENT
  Age: 24 Year
  Sex: Female
  Weight: 57 kg

DRUGS (2)
  1. IMPLANON [Suspect]
     Active Substance: ETONOGESTREL
     Indication: CHEMICAL CONTRACEPTION
     Dosage: UNK
     Route: 059
     Dates: start: 20180109
  2. JAYDESS [Suspect]
     Active Substance: LEVONORGESTREL
     Dosage: 14 MCG/24HR, CONT
     Route: 015
     Dates: start: 20160614, end: 20180112

REACTIONS (3)
  - Pregnancy with contraceptive device [Recovered/Resolved with Sequelae]
  - Drug ineffective [None]
  - Ovulation induction [Recovered/Resolved]

NARRATIVE: CASE EVENT DATE: 201710
